FAERS Safety Report 6273031-7 (Version None)
Quarter: 2009Q3

REPORT INFORMATION
  Report Type: 
  Country: None (occurrence: None)
  Receive Date: 20090715
  Receipt Date: 20090715
  Transmission Date: 20100115
  Serious: No
  Sender: FDA-Public Use
  Company Number: None

PATIENT
  Age: 87 Year
  Sex: Female
  Weight: 59.8748 kg

DRUGS (2)
  1. FLUOCINONIDE [Suspect]
     Indication: RASH
     Dosage: APPLY TWICE DAILY
     Dates: start: 20090617, end: 20090619
  2. FLUOCINONIDE [Suspect]
     Indication: RASH
     Dosage: APPLY TWICE DAILY
     Dates: start: 20090625, end: 20090626

REACTIONS (3)
  - HAIR DISORDER [None]
  - HAIR GROWTH ABNORMAL [None]
  - RASH [None]
